FAERS Safety Report 23615875 (Version 1)
Quarter: 2024Q1

REPORT INFORMATION
  Report Type: Spontaneous
  Country: ES (occurrence: ES)
  Receive Date: 20240311
  Receipt Date: 20240311
  Transmission Date: 20240409
  Serious: Yes (Life-Threatening, Hospitalization)
  Sender: FDA-Public Use
  Company Number: None

PATIENT
  Age: 74 Year
  Sex: Female

DRUGS (2)
  1. PHESGO [Suspect]
     Active Substance: HYALURONIDASE-ZZXF\PERTUZUMAB\TRASTUZUMAB
     Indication: HER2 positive breast cancer
     Dosage: 1200 MG/600 MG SOLUCION PARA INYECCION, 1 VIAL DE 15 ML
     Route: 065
     Dates: start: 20240222, end: 20240222
  2. ABRAXANE [Suspect]
     Active Substance: PACLITAXEL
     Indication: HER2 positive breast cancer
     Dosage: 5 MG/ML POLVO PARA DISPERSION PARA PERFUSION 1 VIAL
     Route: 065
     Dates: start: 20240222, end: 20240222

REACTIONS (2)
  - Atrial fibrillation [Recovered/Resolved]
  - Acute respiratory distress syndrome [Recovering/Resolving]

NARRATIVE: CASE EVENT DATE: 20240222
